FAERS Safety Report 24817671 (Version 2)
Quarter: 2025Q1

REPORT INFORMATION
  Report Type: Report from Study
  Country: US (occurrence: US)
  Receive Date: 20250108
  Receipt Date: 20250110
  Transmission Date: 20250408
  Serious: Yes (Hospitalization, Other)
  Sender: TAIHO ONCOLOGY INC
  Company Number: US-OTSUKA-2024_026137

PATIENT
  Age: 82 Year
  Sex: Female

DRUGS (2)
  1. INQOVI [Suspect]
     Active Substance: CEDAZURIDINE\DECITABINE
     Indication: Plasma cell myeloma in remission
     Dosage: 1 DF (35 MG DECITABINE AND 100 MG CEDAZURIDINE) DAILY FOR 5 DAYS OF 28-DAY CYCLE?DAILY DOSE: 1 DOSAG
     Route: 048
  2. INQOVI [Suspect]
     Active Substance: CEDAZURIDINE\DECITABINE
     Dosage: 1 DF (35 MG DECITABINE AND 100 MG CEDAZURIDINE) DAILY FOR 3 DAYS OF 28 DAY CYCLE?DAILY DOSE: 1 DOSAG
     Route: 048

REACTIONS (7)
  - Transfusion [Recovering/Resolving]
  - Fatigue [Recovering/Resolving]
  - Malaise [Unknown]
  - Product use in unapproved indication [Unknown]
  - Toxicity to various agents [Recovering/Resolving]
  - Underdose [Unknown]
  - Off label use [Unknown]
